FAERS Safety Report 6427995-9 (Version None)
Quarter: 2009Q4

REPORT INFORMATION
  Report Type: 
  Country: None (occurrence: None)
  Receive Date: 20091105
  Receipt Date: 20091102
  Transmission Date: 20100525
  Serious: Yes (Other)
  Sender: FDA-Public Use
  Company Number: US-BRISTOL-MYERS SQUIBB COMPANY-14841068

PATIENT
  Age: 53 Year
  Sex: Female
  Weight: 59 kg

DRUGS (5)
  1. TAXOL [Suspect]
     Route: 065
  2. AVASTIN [Suspect]
     Dosage: 2ND CYCLE(DATE UNKNOWN):SIMILAR DOSE,3RD CYCLE:14JUL09(1500MG DAILY);23JUL09
     Dates: start: 20090601
  3. XELODA [Suspect]
     Indication: BREAST CANCER
     Dosage: 2ND CYCLE:SIMILAR DOSE;3RD CYCLE:14-JUL-09 1500MG DAILY.
     Route: 048
     Dates: start: 20090601
  4. FASLODEX [Suspect]
     Indication: BREAST CANCER METASTATIC
     Route: 065
     Dates: start: 20090805
  5. ZOMETA [Suspect]
     Dates: start: 20090723

REACTIONS (6)
  - DIARRHOEA [None]
  - HYPERTENSION [None]
  - MALIGNANT NEOPLASM PROGRESSION [None]
  - NEUROPATHY PERIPHERAL [None]
  - PALMAR-PLANTAR ERYTHRODYSAESTHESIA SYNDROME [None]
  - WEIGHT DECREASED [None]
